FAERS Safety Report 13316216 (Version 5)
Quarter: 2025Q4

REPORT INFORMATION
  Report Type: Report from Study
  Country: EU (occurrence: EU)
  Receive Date: 20170310
  Receipt Date: 20251007
  Transmission Date: 20260117
  Serious: Yes (Death, Other)
  Sender: AMGEN
  Company Number: EU-AMGEN-ESPSP2017035565

PATIENT
  Age: 24 Year
  Sex: Male

DRUGS (2)
  1. BLINATUMOMAB [Suspect]
     Active Substance: BLINATUMOMAB
     Indication: Acute lymphocytic leukaemia
     Dosage: CYCLE 1
     Route: 040
     Dates: start: 20170221
  2. DEXAMETHASONE [Concomitant]
     Active Substance: DEXAMETHASONE
     Dosage: UNK
     Dates: start: 20170215

REACTIONS (8)
  - Death [Fatal]
  - Thrombocytopenia [Unknown]
  - Cytokine release syndrome [Unknown]
  - Macule [Unknown]
  - Pyrexia [Unknown]
  - Bone pain [Unknown]
  - Oral candidiasis [Unknown]
  - General physical health deterioration [Unknown]

NARRATIVE: CASE EVENT DATE: 20170101
